FAERS Safety Report 25032083 (Version 3)
Quarter: 2025Q2

REPORT INFORMATION
  Report Type: Report from Study
  Country: DE (occurrence: DE)
  Receive Date: 20250303
  Receipt Date: 20250626
  Transmission Date: 20250716
  Serious: Yes (Hospitalization, Other)
  Sender: PFIZER
  Company Number: DE-AMGEN-DEUNI2025031877

PATIENT
  Age: 68 Year
  Sex: Female

DRUGS (21)
  1. ADALIMUMAB [Suspect]
     Active Substance: ADALIMUMAB
     Indication: Rheumatoid arthritis
     Route: 065
     Dates: start: 20181130, end: 20200313
  2. ADALIMUMAB [Suspect]
     Active Substance: ADALIMUMAB
     Indication: Axial spondyloarthritis
     Route: 065
     Dates: start: 20220609, end: 20240322
  3. ADALIMUMAB [Suspect]
     Active Substance: ADALIMUMAB
     Route: 065
     Dates: start: 20240503
  4. AMITRIPTYLINE [Concomitant]
     Active Substance: AMITRIPTYLINE
  5. LEVOTHYROXINE SODIUM [Concomitant]
     Active Substance: LEVOTHYROXINE SODIUM
  6. METOPROLOL [Concomitant]
     Active Substance: METOPROLOL
  7. CHOLECALCIFEROL [Concomitant]
     Active Substance: CHOLECALCIFEROL
  8. TRELEGY ELLIPTA [Concomitant]
     Active Substance: FLUTICASONE FUROATE\UMECLIDINIUM BROMIDE\VILANTEROL TRIFENATATE
  9. PANTOZOL [Concomitant]
     Active Substance: PANTOPRAZOLE SODIUM
  10. ENOXAPARIN [Concomitant]
     Active Substance: ENOXAPARIN
  11. ALBUTEROL [Concomitant]
     Active Substance: ALBUTEROL
  12. IPRATROPIUM [Concomitant]
     Active Substance: IPRATROPIUM
  13. ETORICOXIB [Concomitant]
     Active Substance: ETORICOXIB
     Dates: start: 20170818
  14. ETORICOXIB [Concomitant]
     Active Substance: ETORICOXIB
     Dates: start: 20170918, end: 20190730
  15. ETORICOXIB [Concomitant]
     Active Substance: ETORICOXIB
     Dates: start: 20190815, end: 20210720
  16. ETORICOXIB [Concomitant]
     Active Substance: ETORICOXIB
     Dates: start: 20210815, end: 20211124
  17. IBUPROFEN [Concomitant]
     Active Substance: IBUPROFEN
     Dates: start: 20190731, end: 20190814
  18. IBUPROFEN [Concomitant]
     Active Substance: IBUPROFEN
     Dates: start: 20220815, end: 20231015
  19. HYRIMOZ [Concomitant]
     Active Substance: ADALIMUMAB-ADAZ
     Dates: start: 20200327, end: 20200821
  20. ADALIMUMAB [Concomitant]
     Active Substance: ADALIMUMAB
     Dates: start: 20200904, end: 20220511
  21. NAPROXEN [Concomitant]
     Active Substance: NAPROXEN
     Dates: start: 20211125, end: 20220623

REACTIONS (2)
  - Pneumonia [Recovered/Resolved]
  - Chronic obstructive pulmonary disease [Recovered/Resolved]

NARRATIVE: CASE EVENT DATE: 20240328
